FAERS Safety Report 9957196 (Version 1)
Quarter: 2014Q1

REPORT INFORMATION
  Report Type: Report from Study
  Country: US (occurrence: US)
  Receive Date: 20140304
  Receipt Date: 20140304
  Transmission Date: 20141002
  Serious: No
  Sender: FDA-Public Use
  Company Number: US-ABBVIE-13P-163-1097944-00

PATIENT
  Age: 46 Year
  Sex: Male

DRUGS (7)
  1. HUMIRA [Suspect]
     Indication: RHEUMATOID ARTHRITIS
     Dosage: WEEKLY
     Dates: start: 20130509
  2. COLCRYS [Concomitant]
     Indication: GOUT
  3. OMEPRAZOLE [Concomitant]
     Indication: DYSPEPSIA
  4. GABATENTIN [Concomitant]
     Indication: RHEUMATOID ARTHRITIS
     Dosage: 2-3 PER DAY
  5. PREDNISONE [Concomitant]
     Indication: RHEUMATOID ARTHRITIS
  6. AMITRIPTYLINE HCL [Concomitant]
     Indication: INSOMNIA
     Dosage: AT BEDTIME
  7. ALLOPURINOL [Concomitant]
     Indication: GOUT

REACTIONS (2)
  - Headache [Recovered/Resolved]
  - Injection site pain [Recovered/Resolved]
